FAERS Safety Report 4347990-3 (Version None)
Quarter: 2004Q2

REPORT INFORMATION
  Report Type: 
  Country: None (occurrence: None)
  Receive Date: 20040422
  Receipt Date: 20040415
  Transmission Date: 20050107
  Serious: Yes (Death, Other)
  Sender: FDA-Public Use
  Company Number: 2002097162JP

PATIENT
  Age: 44 Year
  Sex: Male
  Weight: 86 kg

DRUGS (5)
  1. IDARUBICIN HCL [Suspect]
     Indication: ACUTE MYELOID LEUKAEMIA
     Dosage: IV DRIP
     Route: 041
     Dates: start: 20020129, end: 20020131
  2. CYTARABINE [Suspect]
     Indication: ACUTE MYELOID LEUKAEMIA
     Dosage: IV DRIP
     Route: 041
     Dates: start: 20020129, end: 20020204
  3. ALLOPURINOL TAB [Concomitant]
  4. POLYMYXIN B SULFATE [Concomitant]
  5. FAMOTIDINE [Concomitant]

REACTIONS (16)
  - ACIDOSIS [None]
  - BONE MARROW DEPRESSION [None]
  - C-REACTIVE PROTEIN INCREASED [None]
  - ENTEROCOCCAL INFECTION [None]
  - EYE HAEMORRHAGE [None]
  - INTESTINAL HYPOMOTILITY [None]
  - NEISSERIA INFECTION [None]
  - NEUTROPENIA [None]
  - ORAL INFECTION [None]
  - PERIODONTITIS [None]
  - PLATELET COUNT DECREASED [None]
  - PSEUDOMONAS INFECTION [None]
  - SEPSIS [None]
  - SEPTIC SHOCK [None]
  - STAPHYLOCOCCAL INFECTION [None]
  - STREPTOCOCCAL INFECTION [None]
